FAERS Safety Report 9772735 (Version 1)
Quarter: 2013Q4

REPORT INFORMATION
  Report Type: Spontaneous
  Country: US (occurrence: US)
  Receive Date: 20131219
  Receipt Date: 20131219
  Transmission Date: 20140711
  Serious: Yes (Other)
  Sender: FDA-Public Use
  Company Number: US-ACTAVIS-2013-22750

PATIENT
  Age: 74 Year
  Sex: Female

DRUGS (2)
  1. GEMCITABINE (ATLLC) [Suspect]
     Indication: PANCREATIC CARCINOMA
     Dosage: UNK
     Route: 042
     Dates: start: 20100923
  2. GEMCITABINE (ATLLC) [Suspect]
     Indication: METASTASES TO LIVER

REACTIONS (6)
  - Pseudosepsis [Recovered/Resolved]
  - Pulmonary embolism [Recovered/Resolved]
  - Oedema peripheral [Not Recovered/Not Resolved]
  - Erythema [Recovering/Resolving]
  - Skin warm [Recovering/Resolving]
  - Pain of skin [Recovering/Resolving]
